FAERS Safety Report 8002206-1 (Version None)
Quarter: 2011Q4

REPORT INFORMATION
  Report Type: 
  Country: None (occurrence: None)
  Receive Date: 20111222
  Receipt Date: 20101202
  Transmission Date: 20120403
  Serious: No
  Sender: FDA-Public Use
  Company Number: US-GLAXOSMITHKLINE-A0897491A

PATIENT
  Age: 36 Year
  Sex: Male

DRUGS (1)
  1. NICORETTE [Suspect]
     Indication: EX-TOBACCO USER
     Dates: start: 20101130

REACTIONS (2)
  - DIARRHOEA [None]
  - ANXIETY [None]
